FAERS Safety Report 15867901 (Version 1)
Quarter: 2019Q1

REPORT INFORMATION
  Report Type: Spontaneous
  Country: GB (occurrence: GB)
  Receive Date: 20190125
  Receipt Date: 20190125
  Transmission Date: 20190417
  Serious: Yes (Hospitalization, Other)
  Sender: FDA-Public Use
  Company Number: GB-MYLANLABS-2019M1006544

PATIENT

DRUGS (3)
  1. LEVETIRACETAM. [Suspect]
     Active Substance: LEVETIRACETAM
     Indication: PRODUCT USED FOR UNKNOWN INDICATION
     Dosage: 4000 MILLIGRAM, QD (2000 MG, 2X/DAY (BID)
  2. ESLICARBAZEPINE [Concomitant]
     Active Substance: ESLICARBAZEPINE
     Indication: PRODUCT USED FOR UNKNOWN INDICATION
     Dosage: 800 (UNIT NOT PROVIDED) AT NIGHT
  3. LAMOTRIGINE. [Concomitant]
     Active Substance: LAMOTRIGINE
     Indication: PRODUCT USED FOR UNKNOWN INDICATION
     Dosage: DOSE: 200 MG

REACTIONS (8)
  - Overdose [Unknown]
  - Diarrhoea [Unknown]
  - Partial seizures [Unknown]
  - Vomiting [Unknown]
  - Drug ineffective [Unknown]
  - Hemianopia [Unknown]
  - Seizure [Unknown]
  - Off label use [Unknown]
